FAERS Safety Report 20883452 (Version 2)
Quarter: 2022Q2

REPORT INFORMATION
  Report Type: Spontaneous
  Country: US (occurrence: US)
  Receive Date: 20220527
  Receipt Date: 20220628
  Transmission Date: 20220720
  Serious: Yes (Other)
  Sender: FDA-Public Use
  Company Number: US-BRISTOL-MYERS SQUIBB COMPANY-2022-044408

PATIENT
  Age: 74 Year
  Sex: Male

DRUGS (2)
  1. REVLIMID [Suspect]
     Active Substance: LENALIDOMIDE
     Indication: Plasma cell myeloma
     Dosage: DOSE : WAS 20MG, NOW 10 MG.;     FREQ : PREVIOUS: UNKNOWN?CURRENT: DAILY.
     Route: 048
     Dates: start: 2020
  2. REVLIMID [Suspect]
     Active Substance: LENALIDOMIDE
     Dosage: 1 QD QTY 28. START DATE WAS MAY OR JUN-2021
     Route: 048
     Dates: start: 2021

REACTIONS (3)
  - Adverse event [Unknown]
  - Constipation [Recovering/Resolving]
  - Adverse event [Unknown]
